FAERS Safety Report 16922522 (Version 7)
Quarter: 2020Q2

REPORT INFORMATION
  Report Type: Spontaneous
  Country: IT (occurrence: IT)
  Receive Date: 20191016
  Receipt Date: 20200401
  Transmission Date: 20200713
  Serious: Yes (Hospitalization, Other)
  Sender: FDA-Public Use
  Company Number: IT-AUROBINDO-AUR-APL-2019-066862

PATIENT
  Age: 81 Year
  Sex: Male
  Weight: 77 kg

DRUGS (5)
  1. HYDROCHLOROTHIAZIDE. [Concomitant]
     Active Substance: HYDROCHLOROTHIAZIDE
     Dosage: 12 MILLIGRAM
     Route: 065
  2. OLMESARTAN FILM COATED TABLETS [Suspect]
     Active Substance: OLMESARTAN
     Indication: HYPERTENSION
     Dosage: 20 MILLIGRAM, ONCE A DAY
     Route: 065
  3. OLMESARTAN MEDOXOMIL AND HYDROCHLOROTHIAZIDE [Suspect]
     Active Substance: HYDROCHLOROTHIAZIDE\OLMESARTAN MEDOXOMIL
     Indication: HYPERTENSION
     Dosage: 1 DOSAGE FORM, ONCE A DAY
     Route: 065
  4. OLMESARTAN+HYDROCHLOROTHIAZIDE 20/12.5MG [Suspect]
     Active Substance: HYDROCHLOROTHIAZIDE\OLMESARTAN MEDOXOMIL
     Indication: HYPERTENSION
     Dosage: 1 DOSAGE FORM, ONCE A DAY
     Route: 065
     Dates: start: 2016, end: 2018
  5. HYDROCHLOROTHIAZIDE. [Concomitant]
     Active Substance: HYDROCHLOROTHIAZIDE
     Indication: HYPERTENSION
     Dosage: UNK (20)
     Route: 065

REACTIONS (27)
  - Oedema peripheral [Recovered/Resolved]
  - Atrophy [Unknown]
  - Intestinal intraepithelial lymphocytes increased [Unknown]
  - Gastrointestinal erosion [Recovered/Resolved]
  - Fluid retention [Recovered/Resolved]
  - Diarrhoea [Unknown]
  - Generalised oedema [Recovered/Resolved]
  - Diverticulitis [Recovered/Resolved]
  - Gastrointestinal mucosa hyperaemia [Recovered/Resolved]
  - Lymphangiectasia intestinal [Recovered/Resolved]
  - Gastrointestinal disorder [Recovered/Resolved]
  - Asthenia [Unknown]
  - Ascites [Recovered/Resolved]
  - Vitamin B12 decreased [Unknown]
  - Sprue-like enteropathy [Recovered/Resolved]
  - Intestinal villi atrophy [Recovered/Resolved]
  - Hypoalbuminaemia [Recovered/Resolved]
  - Therapy partial responder [Unknown]
  - Hypokalaemia [Recovered/Resolved]
  - Condition aggravated [Recovered/Resolved]
  - Blood iron decreased [Recovered/Resolved]
  - Blood folate decreased [Unknown]
  - Malabsorption [Recovered/Resolved]
  - Pleural effusion [Recovered/Resolved]
  - Anaemia [Recovered/Resolved]
  - Hypernatraemia [Recovered/Resolved]
  - C-reactive protein increased [Unknown]

NARRATIVE: CASE EVENT DATE: 2014
